FAERS Safety Report 9283921 (Version 1)
Quarter: 2013Q2

REPORT INFORMATION
  Report Type: Spontaneous
  Country: US (occurrence: None)
  Receive Date: 20130502
  Receipt Date: 20130502
  Transmission Date: 20140414
  Serious: Yes (Other)
  Sender: FDA-Public Use
  Company Number: VAL_02313_2013

PATIENT
  Sex: Female

DRUGS (9)
  1. METOPROLOL [Suspect]
     Indication: PRODUCT USED FOR UNKNOWN INDICATION
  2. DIOVAN (NOT SPECIFIED) [Suspect]
     Indication: PRODUCT USED FOR UNKNOWN INDICATION
     Dosage: DF UNTIL NOT CONTINUING??
  3. LISINOPRIL [Suspect]
     Indication: PRODUCT USED FOR UNKNOWN INDICATION
     Dosage: DF?
  4. CARVEDILOL [Suspect]
     Indication: PRODUCT USED FOR UNKNOWN INDICATION
     Dosage: TO UNKNOWN
     Dates: start: 2011
  5. VOLTAREN [Suspect]
     Indication: PLANTAR FASCIITIS
     Dosage: TO UNKNOWN
     Dates: start: 20110330
  6. ZOCOR [Suspect]
     Indication: PRODUCT USED FOR UNKNOWN INDICATION
     Dosage: DF REGIMEN 1
  7. CRESTOR [Suspect]
     Indication: PRODUCT USED FOR UNKNOWN INDICATION
     Dosage: DF (NOT SPECIFIED)?
  8. RAMIPRIL [Suspect]
     Indication: PRODUCT USED FOR UNKNOWN INDICATION
     Dosage: TO UNKNOWN
     Dates: start: 201203
  9. VITAMIN E [Suspect]
     Indication: PRODUCT USED FOR UNKNOWN INDICATION
     Dosage: DF?

REACTIONS (7)
  - Vomiting [None]
  - Dizziness [None]
  - Muscle injury [None]
  - Dyspnoea [None]
  - Cataract [None]
  - Arterial rupture [None]
  - Peripheral arterial occlusive disease [None]
